FAERS Safety Report 10064157 (Version 1)
Quarter: 2014Q2

REPORT INFORMATION
  Report Type: Spontaneous
  Country: IN (occurrence: None)
  Receive Date: 20140404
  Receipt Date: 20140404
  Transmission Date: 20141212
  Serious: Yes (Death, Life-Threatening, Hospitalization, Other)
  Sender: FDA-Public Use
  Company Number: FK201401087

PATIENT
  Age: 26 Year
  Sex: Male

DRUGS (5)
  1. HEPARIN [Suspect]
     Indication: POOR VENOUS ACCESS
  2. TRAMADOL [Concomitant]
  3. DICLOFENAC [Concomitant]
  4. PHENIRAMINE [Concomitant]
  5. DEXAMETHASONE [Concomitant]

REACTIONS (20)
  - Hyperkalaemia [None]
  - Sepsis [None]
  - Ventricular fibrillation [None]
  - Muscular weakness [None]
  - Tachypnoea [None]
  - Blister [None]
  - Oral candidiasis [None]
  - Drug abuse [None]
  - Upper gastrointestinal haemorrhage [None]
  - Metabolic acidosis [None]
  - Blood pressure decreased [None]
  - Thrombocytopenia [None]
  - Coagulopathy [None]
  - Areflexia [None]
  - Left ventricular dysfunction [None]
  - Ventricular hypokinesia [None]
  - Metabolic acidosis [None]
  - Lactic acidosis [None]
  - Dialysis [None]
  - General physical health deterioration [None]
